FAERS Safety Report 9636209 (Version 1)
Quarter: 2013Q4

REPORT INFORMATION
  Report Type: Spontaneous
  Country: GB (occurrence: GB)
  Receive Date: 20131021
  Receipt Date: 20131021
  Transmission Date: 20140711
  Serious: Yes (Life-Threatening, Hospitalization)
  Sender: FDA-Public Use
  Company Number: GB-WATSON-2013-18443

PATIENT
  Age: 60 Year
  Sex: Female

DRUGS (3)
  1. HEPARIN SODIUM (WATSON LABORATORIES) [Suspect]
     Indication: PULMONARY EMBOLISM
     Dosage: 1.6 ML/H, UNK
     Route: 042
  2. HEPARIN SODIUM (WATSON LABORATORIES) [Suspect]
     Dosage: 1.4 ML/H, UNK
     Route: 042
  3. OLANZAPINE [Concomitant]
     Indication: BIPOLAR DISORDER
     Dosage: UNK
     Route: 065

REACTIONS (1)
  - Intra-abdominal haemorrhage [Recovering/Resolving]
